FAERS Safety Report 12425812 (Version 1)
Quarter: 2016Q2

REPORT INFORMATION
  Report Type: Spontaneous
  Country: FR (occurrence: FR)
  Receive Date: 20160601
  Receipt Date: 20160601
  Transmission Date: 20160815
  Serious: Yes (Hospitalization)
  Sender: FDA-Public Use
  Company Number: FR-PFIZER INC-2016283553

PATIENT
  Age: 74 Year
  Sex: Male

DRUGS (6)
  1. REVLIMID [Concomitant]
     Active Substance: LENALIDOMIDE
     Dosage: UNK
     Dates: start: 2015
  2. CORDARONE [Suspect]
     Active Substance: AMIODARONE HYDROCHLORIDE
     Indication: ARRHYTHMIA
     Dosage: UNK
     Route: 065
     Dates: end: 201502
  3. CORDARONE [Suspect]
     Active Substance: AMIODARONE HYDROCHLORIDE
     Dosage: 200 MG, DAILY
     Route: 048
     Dates: start: 201601, end: 201604
  4. ZOPHREN [Concomitant]
     Active Substance: ONDANSETRON
     Dosage: 8 MG, DAILY (PO 4: AT 8 MG/DAY)
     Route: 048
  5. FLECAINIDE [Concomitant]
     Active Substance: FLECAINIDE
     Dosage: UNK
     Dates: end: 2016
  6. VIDAZA [Concomitant]
     Active Substance: AZACITIDINE
     Dosage: 75 MG/M2, DAILY ((135 MG/D) BY TREATMENTS OF 3 WEEKS ALL 4 WEEKS AND THEN ALL 6 WEEKS)
     Route: 058
     Dates: start: 20141023

REACTIONS (2)
  - Trigeminal nerve disorder [Not Recovered/Not Resolved]
  - Neuropathy peripheral [Not Recovered/Not Resolved]

NARRATIVE: CASE EVENT DATE: 201602
